FAERS Safety Report 6015977-0 (Version None)
Quarter: 2008Q4

REPORT INFORMATION
  Report Type: 
  Country: None (occurrence: None)
  Receive Date: 20081218
  Receipt Date: 20081204
  Transmission Date: 20090506
  Serious: Yes (Other)
  Sender: FDA-Public Use
  Company Number: 2008AL012363

PATIENT
  Sex: Female

DRUGS (2)
  1. DIAZEPAM TAB [Suspect]
     Indication: ANXIETY
     Dosage: 9 MG, PO
     Route: 048
  2. DIAZEPAM (ALPHARMA) [Concomitant]

REACTIONS (3)
  - FEAR [None]
  - IRRITABILITY [None]
  - NIGHTMARE [None]
